FAERS Safety Report 7682345-5 (Version None)
Quarter: 2011Q3

REPORT INFORMATION
  Report Type: 
  Country: None (occurrence: None)
  Receive Date: 20110815
  Receipt Date: 20110811
  Transmission Date: 20111222
  Serious: Yes (Hospitalization)
  Sender: FDA-Public Use
  Company Number: CA-BRISTOL-MYERS SQUIBB COMPANY-15965718

PATIENT
  Age: 63 Year
  Sex: Male
  Weight: 64 kg

DRUGS (16)
  1. CISPLATIN [Suspect]
     Indication: HEAD AND NECK CANCER
     Dosage: LAST DOSE:28JUL11
     Route: 042
     Dates: start: 20110526
  2. FLUOROURACIL [Suspect]
     Indication: HEAD AND NECK CANCER
     Dosage: LAST DOSE:28JUL11 D1-D4
     Route: 042
     Dates: start: 20110526
  3. MANNITOL [Concomitant]
     Dates: start: 20110526
  4. DEXAMETHASONE [Concomitant]
     Dates: start: 20110526
  5. LORAZEPAM [Concomitant]
     Dates: start: 19950101
  6. FLURAZEPAM [Concomitant]
     Dates: start: 20100301
  7. SENNA [Concomitant]
     Dates: start: 20110324
  8. PANTOPRAZOLE [Concomitant]
     Dates: start: 20110526
  9. PREDNISONE [Concomitant]
     Dates: start: 20110622
  10. ERBITUX [Suspect]
     Indication: HEAD AND NECK CANCER
     Dosage: LAST DOSE:28JUL11 26MAY11 400MG/M2(1D) ON D1 2JUN11-UNK 250MG/M2 D1,D8,D15
     Route: 065
     Dates: start: 20110526
  11. DIPHENHYDRAMINE HCL [Concomitant]
     Dates: start: 20110526
  12. TRIMIPRAMINE MALEATE [Concomitant]
     Dates: start: 20080101
  13. DOCUSATE [Concomitant]
     Dates: start: 20110324
  14. MORPHINE [Concomitant]
     Dates: start: 20110324
  15. LEVOTHYROXINE SODIUM [Concomitant]
  16. FUROSEMIDE [Concomitant]
     Dates: start: 20110526

REACTIONS (1)
  - HYPOTENSION [None]
